FAERS Safety Report 4904918-2 (Version None)
Quarter: 2006Q1

REPORT INFORMATION
  Report Type: 
  Country: None (occurrence: None)
  Receive Date: 20060208
  Receipt Date: 20051021
  Transmission Date: 20060701
  Serious: No
  Sender: FDA-Public Use
  Company Number: US-GLAXOSMITHKLINE-A0579180A

PATIENT
  Age: 40 Year
  Sex: Female

DRUGS (1)
  1. PAROXETINE HCL [Suspect]
     Indication: DEPRESSION
     Dosage: 30MG PER DAY
     Route: 048
     Dates: start: 20031001

REACTIONS (5)
  - ANXIETY [None]
  - DIFFICULTY IN WALKING [None]
  - DIZZINESS [None]
  - MUSCLE SPASMS [None]
  - VOMITING [None]
